FAERS Safety Report 7413149-6 (Version None)
Quarter: 2011Q2

REPORT INFORMATION
  Report Type: 
  Country: None (occurrence: None)
  Receive Date: 20110413
  Receipt Date: 20110406
  Transmission Date: 20111010
  Serious: Yes (Hospitalization)
  Sender: FDA-Public Use
  Company Number: GB-PFIZER INC-2011058534

PATIENT
  Age: 70 Year
  Sex: Male
  Weight: 57.7 kg

DRUGS (3)
  1. DOXORUBICIN [Suspect]
     Indication: MULTIPLE MYELOMA
     Dosage: UNK
     Route: 042
     Dates: start: 20101116
  2. DOXORUBICIN [Suspect]
     Dosage: 2 %, UNK
     Route: 040
  3. BORTEZOMIB [Suspect]
     Indication: MULTIPLE MYELOMA
     Dosage: UNK
     Route: 040
     Dates: start: 20101116

REACTIONS (1)
  - ATRIAL FIBRILLATION [None]
